FAERS Safety Report 8867544 (Version 1)
Quarter: 2012Q4

REPORT INFORMATION
  Report Type: 
  Country: US (occurrence: US)
  Receive Date: 20121025
  Receipt Date: 20121025
  Transmission Date: 20130627
  Serious: No
  Sender: FDA-Public Use
  Company Number: US-AMGEN-USASP2012017188

PATIENT
  Age: 27 Year
  Sex: Female
  Weight: 74.83 kg

DRUGS (5)
  1. ENBREL [Suspect]
     Indication: PRODUCT USED FOR UNKNOWN INDICATION
     Dosage: 50 mg, qwk
     Route: 058
  2. BIOTIN [Concomitant]
     Dosage: UNK
  3. OLUX E [Concomitant]
     Dosage: 0.05 %, UNK
  4. PIROXICAM [Concomitant]
     Dosage: 10 mg, UNK
  5. CENTRUM                            /00554501/ [Concomitant]
     Dosage: UNK

REACTIONS (1)
  - Injection site bruising [Unknown]
